FAERS Safety Report 6138008-0 (Version None)
Quarter: 2009Q1

REPORT INFORMATION
  Report Type: 
  Country: None (occurrence: None)
  Receive Date: 20090331
  Receipt Date: 20090323
  Transmission Date: 20090719
  Serious: Yes (Other)
  Sender: FDA-Public Use
  Company Number: DE-ROCHE-623099

PATIENT
  Age: 63 Year
  Sex: Female

DRUGS (2)
  1. CEFTRIAXONE [Suspect]
     Indication: ENCEPHALITIS
     Route: 065
  2. METHYLPREDNISOLONE 4MG TAB [Suspect]
     Indication: DRUG USE FOR UNKNOWN INDICATION
     Route: 065

REACTIONS (4)
  - ASCITES [None]
  - DIFFUSE LARGE B-CELL LYMPHOMA [None]
  - PLEURAL EFFUSION [None]
  - RENAL FAILURE ACUTE [None]
